FAERS Safety Report 9240518 (Version 2)
Quarter: 2013Q2

REPORT INFORMATION
  Report Type: Spontaneous
  Country: US (occurrence: None)
  Receive Date: 20130412
  Receipt Date: 20130524
  Transmission Date: 20140414
  Serious: Yes (Hospitalization)
  Sender: FDA-Public Use
  Company Number: 2013PROUSA02710

PATIENT
  Age: 66 Year
  Sex: Male
  Weight: 84.6 kg

DRUGS (9)
  1. PROVENGE (SIPULEUCEL-T) SUSPENSION, 250ML [Suspect]
     Indication: PROSTATE CANCER METASTATIC
     Dosage: 250 ML, SINGLE, INTRAVENOUS
     Route: 042
     Dates: start: 20130321, end: 20130321
  2. ZYTIGA (ABIRATERONE ACETATE) [Concomitant]
  3. CASODEX (BICALUTAMIDE) [Concomitant]
  4. LUPRON (LEUPRORELIN ACETATE) [Concomitant]
  5. CALCIUM WITH VITAMIN D (CALCIUM CARBONATE, COLECALCIFEROL) [Concomitant]
  6. PREDNISONE (PREDNISONE) [Concomitant]
  7. PROTONIX (PANTOPRAZOLE SODIUM SESQUIHYDRATE) [Concomitant]
  8. DILTIAZEM HYDROCHLORIDE) [Concomitant]
  9. LISINOPRIL (LISINOPRIL) [Concomitant]

REACTIONS (3)
  - Myocardial infarction [None]
  - Hypotension [None]
  - Bradycardia [None]
